FAERS Safety Report 10257430 (Version 1)
Quarter: 2014Q2

REPORT INFORMATION
  Report Type: Spontaneous
  Country: US (occurrence: US)
  Receive Date: 20140625
  Receipt Date: 20140625
  Transmission Date: 20141212
  Serious: Yes (Hospitalization)
  Sender: FDA-Public Use
  Company Number: US-JNJFOC-20140610448

PATIENT
  Age: 68 Year
  Sex: Male

DRUGS (3)
  1. DOXIL [Suspect]
     Indication: PLASMA CELL MYELOMA
     Dosage: 2MG/ML 25 ML SDV (SINGLE DOSE VIAL), ONE TIME DOSE
     Route: 042
     Dates: start: 20131115, end: 20131115
  2. DOXIL [Suspect]
     Indication: PLASMA CELL MYELOMA
     Dosage: 2 MG/MG 10 ML SDV (SINGLE DOSE VIAL), ONE TIME DOSE
     Route: 042
     Dates: start: 20131115, end: 20131115
  3. VINCRISTINE [Suspect]
     Indication: PLASMA CELL MYELOMA
     Dosage: ONE TIME DOSE, 2 MG/2 ML
     Route: 042
     Dates: start: 20131115, end: 20131115

REACTIONS (2)
  - Pneumonia [Unknown]
  - Atrial flutter [Unknown]
